FAERS Safety Report 4559234-8 (Version None)
Quarter: 2005Q1

REPORT INFORMATION
  Report Type: 
  Country: None (occurrence: None)
  Receive Date: 20050124
  Receipt Date: 20040329
  Transmission Date: 20050727
  Serious: Yes (Hospitalization)
  Sender: FDA-Public Use
  Company Number: FR-MERCK-0403FRA00120

PATIENT
  Age: 84 Year
  Sex: Female

DRUGS (2)
  1. VIOXX [Suspect]
     Indication: OSTEOARTHRITIS
     Route: 048
     Dates: start: 20040101, end: 20040101
  2. GINKGO BILOBA EXTRACT [Concomitant]
     Route: 048

REACTIONS (3)
  - GASTRIC ULCER [None]
  - GASTROENTERITIS [None]
  - MELAENA [None]
